FAERS Safety Report 11185378 (Version 1)
Quarter: 2015Q2

REPORT INFORMATION
  Report Type: Spontaneous
  Country: US (occurrence: US)
  Receive Date: 20150612
  Receipt Date: 20150612
  Transmission Date: 20150821
  Serious: Yes (Hospitalization, Other)
  Sender: FDA-Public Use
  Company Number: US-ASTRAZENECA-2013SE79358

PATIENT
  Age: 26496 Day
  Sex: Female

DRUGS (29)
  1. NORVASC [Concomitant]
     Active Substance: AMLODIPINE BESYLATE
  2. VYTORIN [Concomitant]
     Active Substance: EZETIMIBE\SIMVASTATIN
  3. BENADRYL [Concomitant]
     Active Substance: DIPHENHYDRAMINE HYDROCHLORIDE
  4. BETAMETHASONE+CLOTRIMAZOLE [Concomitant]
  5. VICODIN [Concomitant]
     Active Substance: ACETAMINOPHEN\HYDROCODONE BITARTRATE
  6. POTASSIUM CITRATE. [Concomitant]
     Active Substance: POTASSIUM CITRATE
     Dosage: UNK UNK, TID
  7. XELODA [Concomitant]
     Active Substance: CAPECITABINE
  8. PHENERGAN [Concomitant]
     Active Substance: PROMETHAZINE HYDROCHLORIDE
  9. POTASSIUM [Concomitant]
     Active Substance: POTASSIUM
  10. NOVOLOG [Concomitant]
     Active Substance: INSULIN ASPART
     Dosage: UNK UNK, TID
  11. SYNTHROID [Concomitant]
     Active Substance: LEVOTHYROXINE SODIUM
  12. FENOFIBRATE. [Concomitant]
     Active Substance: FENOFIBRATE
  13. CLARITIN [Concomitant]
     Active Substance: LORATADINE
  14. BYETTA [Suspect]
     Active Substance: EXENATIDE
     Indication: TYPE 2 DIABETES MELLITUS
     Dosage: UNK
     Route: 065
     Dates: start: 20070709, end: 200806
  15. JANUVIA [Suspect]
     Active Substance: SITAGLIPTIN PHOSPHATE
     Indication: TYPE 2 DIABETES MELLITUS
     Dosage: UNK
     Route: 065
     Dates: start: 20070425, end: 200706
  16. AMYLASE + PROTEASE/ CREON [Concomitant]
  17. ASPIRIN. [Concomitant]
     Active Substance: ASPIRIN
  18. GEMZAR [Concomitant]
     Active Substance: GEMCITABINE HYDROCHLORIDE
  19. TENORMIN [Concomitant]
     Active Substance: ATENOLOL
  20. ULTRAM [Concomitant]
     Active Substance: TRAMADOL HYDROCHLORIDE
  21. CARDURA [Concomitant]
     Active Substance: DOXAZOSIN MESYLATE
  22. EMLA [Concomitant]
     Active Substance: LIDOCAINE\PRILOCAINE
     Dosage: UNK
     Route: 061
  23. LANTUS [Concomitant]
     Active Substance: INSULIN GLARGINE
     Route: 058
  24. LOMOTIL [Concomitant]
     Active Substance: ATROPINE SULFATE\DIPHENOXYLATE HYDROCHLORIDE
  25. PRILOSEC [Concomitant]
     Active Substance: OMEPRAZOLE MAGNESIUM
  26. CALCIUM + VITAMIN D [Concomitant]
     Active Substance: CALCIUM\VITAMIN D
  27. FOLFOX [Suspect]
     Active Substance: FLUOROURACIL\LEUCOVORIN CALCIUM\OXALIPLATIN
  28. LIPASE [Concomitant]
     Active Substance: LIPASE
  29. PROMETHAZINE [Concomitant]
     Active Substance: PROMETHAZINE\PROMETHAZINE HYDROCHLORIDE

REACTIONS (1)
  - Adenocarcinoma pancreas [Unknown]

NARRATIVE: CASE EVENT DATE: 20120806
